FAERS Safety Report 5875091-1 (Version None)
Quarter: 2008Q3

REPORT INFORMATION
  Report Type: 
  Country: None (occurrence: None)
  Receive Date: 20080908
  Receipt Date: 20080908
  Transmission Date: 20090109
  Serious: Yes (Hospitalization)
  Sender: FDA-Public Use
  Company Number: None

PATIENT
  Age: 68 Year
  Sex: Male
  Weight: 73 kg

DRUGS (1)
  1. LISINOPRIL [Suspect]
     Indication: HYPERTENSION
     Dosage: 2.5 MG BID PO
     Route: 048
     Dates: start: 20050506, end: 20080902

REACTIONS (4)
  - ANGIOEDEMA [None]
  - GLOSSODYNIA [None]
  - LIP SWELLING [None]
  - SWOLLEN TONGUE [None]
